FAERS Safety Report 4972139-3 (Version None)
Quarter: 2006Q2

REPORT INFORMATION
  Report Type: 
  Country: None (occurrence: None)
  Receive Date: 20060413
  Receipt Date: 20060317
  Transmission Date: 20061013
  Serious: Yes (Other)
  Sender: FDA-Public Use
  Company Number: PHEH2006US03623

PATIENT
  Age: 41 Year
  Sex: Male
  Weight: 96.145 kg

DRUGS (7)
  1. CLOZARIL [Suspect]
     Indication: SCHIZOPHRENIA
     Dosage: 600 MG, UNK
     Route: 048
  2. NIASPAN [Concomitant]
     Indication: HYPERTRIGLYCERIDAEMIA
     Dosage: 1000 MG, QD
     Route: 048
     Dates: start: 20050315
  3. ASPIRIN [Concomitant]
     Dosage: 325 MG, QD
     Route: 048
     Dates: start: 20031104
  4. LISINOPRIL [Concomitant]
     Indication: HYPERTENSION
     Dosage: 10 MG, QD
     Route: 048
     Dates: start: 20050315
  5. PROTONIX [Concomitant]
     Indication: GASTROOESOPHAGEAL REFLUX DISEASE
     Dosage: 40 MG, QD
     Route: 048
  6. LOPID [Concomitant]
     Indication: HYPERCHOLESTEROLAEMIA
     Dosage: 600 MG, BID
     Route: 048
     Dates: start: 20040728
  7. WELCHOL [Concomitant]
     Dosage: 3 TABS, BID
     Route: 048
     Dates: start: 20040402

REACTIONS (6)
  - LEUKOCYTOSIS [None]
  - LEUKOPENIA [None]
  - NEUTROPHIL COUNT ABNORMAL [None]
  - ORCHIDECTOMY [None]
  - RADIOTHERAPY [None]
  - TESTIS CANCER [None]
